FAERS Safety Report 8499867-X (Version None)
Quarter: 2012Q3

REPORT INFORMATION
  Report Type: 
  Country: None (occurrence: None)
  Receive Date: 20120710
  Receipt Date: 20120704
  Transmission Date: 20120928
  Serious: Yes (Hospitalization)
  Sender: FDA-Public Use
  Company Number: TR-PFIZER INC-2012161209

PATIENT
  Age: 41 Year
  Sex: Female

DRUGS (4)
  1. VARENICLINE TARTRATE [Suspect]
     Dosage: UNK
     Route: 048
     Dates: start: 20120619, end: 20120101
  2. ZYRTEC [Concomitant]
  3. VARENICLINE TARTRATE [Suspect]
     Dosage: 1 TABLET IN THE MORNING AND 1 TABLET IN THE EVENING
     Route: 048
     Dates: start: 20120101, end: 20120705
  4. GESTODENE [Concomitant]

REACTIONS (6)
  - NAUSEA [None]
  - HUNGER [None]
  - FEELING ABNORMAL [None]
  - VOMITING [None]
  - DYSPEPSIA [None]
  - DIZZINESS [None]
